FAERS Safety Report 6086563-1 (Version None)
Quarter: 2009Q1

REPORT INFORMATION
  Report Type: 
  Country: None (occurrence: None)
  Receive Date: 20090223
  Receipt Date: 20090219
  Transmission Date: 20090719
  Serious: Yes (Hospitalization)
  Sender: FDA-Public Use
  Company Number: JP-BRISTOL-MYERS SQUIBB COMPANY-14496426

PATIENT
  Age: 60 Year
  Sex: Female
  Weight: 43 kg

DRUGS (6)
  1. TAXOL [Suspect]
     Indication: OVARIAN CANCER
     Route: 041
  2. PARAPLATIN [Suspect]
     Indication: OVARIAN CANCER
     Route: 041
  3. THIOPENTAL SODIUM [Suspect]
  4. SEVOFLURANE [Suspect]
     Route: 055
  5. ROCURONIUM BROMIDE [Suspect]
     Route: 042
  6. REMIFENTANIL HCL [Suspect]
     Route: 042

REACTIONS (1)
  - STRESS CARDIOMYOPATHY [None]
